FAERS Safety Report 7998986-1 (Version None)
Quarter: 2011Q4

REPORT INFORMATION
  Report Type: 
  Country: None (occurrence: None)
  Receive Date: 20111221
  Receipt Date: 20111216
  Transmission Date: 20120403
  Serious: Yes (Other)
  Sender: FDA-Public Use
  Company Number: US-TEVA-313906USA

PATIENT
  Sex: Female
  Weight: 51.8 kg

DRUGS (1)
  1. PARAGARD T 380A [Suspect]
     Indication: CONTRACEPTION
     Route: 015
     Dates: start: 20111111, end: 20111213

REACTIONS (5)
  - ABDOMINAL PAIN [None]
  - VAGINAL DISCHARGE [None]
  - GASTROENTERITIS [None]
  - VULVOVAGINAL PRURITUS [None]
  - DEVICE EXPULSION [None]
